FAERS Safety Report 19078730 (Version 1)
Quarter: 2021Q1

REPORT INFORMATION
  Report Type: Spontaneous
  Country: CN (occurrence: CN)
  Receive Date: 20210331
  Receipt Date: 20210331
  Transmission Date: 20210420
  Serious: Yes (Other)
  Sender: FDA-Public Use
  Company Number: CN-INCYTE CORPORATION-2019IN013531

PATIENT

DRUGS (1)
  1. JAKAVI [Suspect]
     Active Substance: RUXOLITINIB
     Indication: MYELOFIBROSIS
     Dosage: 5 MG, BID
     Route: 048
     Dates: start: 20180706

REACTIONS (7)
  - Haemoglobin abnormal [Unknown]
  - Neutrophil count abnormal [Unknown]
  - Asthenia [Unknown]
  - Pyrexia [Unknown]
  - White blood cell count abnormal [Unknown]
  - Splenomegaly [Unknown]
  - Platelet count abnormal [Unknown]
